FAERS Safety Report 5275815-0 (Version None)
Quarter: 2007Q1

REPORT INFORMATION
  Report Type: 
  Country: None (occurrence: None)
  Receive Date: 20070326
  Receipt Date: 20070320
  Transmission Date: 20070707
  Serious: Yes (Other)
  Sender: FDA-Public Use
  Company Number: AT-GLAXOSMITHKLINE-B0463433A

PATIENT
  Age: 18 Year
  Sex: Male

DRUGS (1)
  1. ZOVIRAX [Suspect]
     Indication: ERYTHEMA MULTIFORME
     Dosage: 250MG THREE TIMES PER DAY
     Route: 042
     Dates: start: 20060616, end: 20060618

REACTIONS (1)
  - TACHYCARDIA [None]
